FAERS Safety Report 16942409 (Version 3)
Quarter: 2019Q4

REPORT INFORMATION
  Report Type: Spontaneous
  Country: US (occurrence: US)
  Receive Date: 20191021
  Receipt Date: 20191118
  Transmission Date: 20200122
  Serious: No
  Sender: FDA-Public Use
  Company Number: US-SA-2019SA283796

PATIENT
  Age: 42 Year
  Sex: Female
  Weight: 100.68 kg

DRUGS (4)
  1. DUPIXENT [Suspect]
     Active Substance: DUPILUMAB
     Indication: DERMATITIS
     Dosage: 600 MG, 1X
     Route: 058
     Dates: start: 20190927, end: 20190927
  2. DUPIXENT [Suspect]
     Active Substance: DUPILUMAB
     Dosage: 300 MG, QOW
     Route: 058
     Dates: start: 20191020
  3. NAPROXEN. [Concomitant]
     Active Substance: NAPROXEN
  4. SERTRALINE HYDROCHLORIDE. [Concomitant]
     Active Substance: SERTRALINE HYDROCHLORIDE

REACTIONS (9)
  - Dysphagia [Unknown]
  - Fatigue [Recovered/Resolved]
  - Eye pruritus [Unknown]
  - Swollen tongue [Recovered/Resolved]
  - Product use issue [Unknown]
  - Dermatitis [Unknown]
  - Hypoaesthesia oral [Recovered/Resolved]
  - Paraesthesia oral [Unknown]
  - Oral discomfort [Unknown]

NARRATIVE: CASE EVENT DATE: 2019
